FAERS Safety Report 12013512 (Version 1)
Quarter: 2016Q1

REPORT INFORMATION
  Report Type: Spontaneous
  Country: JP (occurrence: JP)
  Receive Date: 20160205
  Receipt Date: 20160205
  Transmission Date: 20160526
  Serious: Yes (Other)
  Sender: FDA-Public Use
  Company Number: JP-PFIZER INC-2016060175

PATIENT
  Age: 88 Year
  Sex: Male

DRUGS (2)
  1. ETIZOLAM [Concomitant]
     Active Substance: ETIZOLAM
     Route: 048
  2. HALCION [Suspect]
     Active Substance: TRIAZOLAM
     Route: 048

REACTIONS (2)
  - Delirium [Unknown]
  - Restlessness [Unknown]
